FAERS Safety Report 7425553-0 (Version None)
Quarter: 2011Q2

REPORT INFORMATION
  Report Type: 
  Country: None (occurrence: None)
  Receive Date: 20110420
  Receipt Date: 20110411
  Transmission Date: 20111010
  Serious: Yes (Hospitalization)
  Sender: FDA-Public Use
  Company Number: US-NOVOPROD-326482

PATIENT
  Age: 67 Year
  Sex: Male
  Weight: 90.249 kg

DRUGS (1)
  1. VICTOZA [Suspect]
     Indication: TYPE 2 DIABETES MELLITUS
     Dosage: 1.2 MG, QD
     Route: 058
     Dates: start: 20110201

REACTIONS (3)
  - DYSPNOEA [None]
  - DRY MOUTH [None]
  - LOSS OF CONSCIOUSNESS [None]
